FAERS Safety Report 4780117-2 (Version None)
Quarter: 2005Q3

REPORT INFORMATION
  Report Type: 
  Country: None (occurrence: None)
  Receive Date: 20050914
  Receipt Date: 20050422
  Transmission Date: 20060218
  Serious: Yes (Hospitalization)
  Sender: FDA-Public Use
  Company Number: 163-20785-03100153

PATIENT
  Age: 58 Year
  Sex: Male

DRUGS (15)
  1. THALOMID [Suspect]
     Indication: MULTIPLE MYELOMA
     Dosage: 400 MG, DAILY, ORAL;  200 - 400MG, DAILY, ORAL
     Route: 048
     Dates: start: 20030722, end: 20030819
  2. THALOMID [Suspect]
     Indication: MULTIPLE MYELOMA
     Dosage: 400 MG, DAILY, ORAL;  200 - 400MG, DAILY, ORAL
     Route: 048
     Dates: start: 20031112, end: 20040112
  3. ADRIAMYCIN PFS [Suspect]
     Indication: MULTIPLE MYELOMA
     Dosage: 19 MG, INTRAVENOUS
     Route: 042
     Dates: start: 20030722, end: 20030725
  4. ADRIAMYCIN PFS [Suspect]
     Indication: MULTIPLE MYELOMA
     Dosage: 19 MG, INTRAVENOUS
     Route: 042
     Dates: start: 20040106
  5. DEXAMETHASONE [Suspect]
     Indication: MULTIPLE MYELOMA
     Dosage: 40 MG, ORAL; 40 MG, DAILY, ORAL
     Route: 048
     Dates: start: 20030722, end: 20030725
  6. DEXAMETHASONE [Suspect]
     Indication: MULTIPLE MYELOMA
     Dosage: 40 MG, ORAL; 40 MG, DAILY, ORAL
     Route: 048
     Dates: start: 20030730, end: 20030802
  7. DEXAMETHASONE [Suspect]
     Indication: MULTIPLE MYELOMA
     Dosage: 40 MG, ORAL; 40 MG, DAILY, ORAL
     Route: 048
     Dates: start: 20030807, end: 20030810
  8. DEXAMETHASONE [Suspect]
     Indication: MULTIPLE MYELOMA
     Dosage: 40 MG, ORAL; 40 MG, DAILY, ORAL
     Route: 048
     Dates: start: 20031111
  9. DEXAMETHASONE [Suspect]
     Indication: MULTIPLE MYELOMA
     Dosage: 40 MG, ORAL; 40 MG, DAILY, ORAL
     Route: 048
     Dates: start: 20040106
  10. VINCRISTINE [Suspect]
     Indication: MULTIPLE MYELOMA
     Dates: start: 20030722
  11. CYCLOPHOSPHAMIDE [Suspect]
     Indication: MULTIPLE MYELOMA
     Dates: start: 20031111
  12. CYCLOPHOSPHAMIDE [Suspect]
     Indication: MULTIPLE MYELOMA
     Dates: start: 20040106
  13. ETOPOSIDE [Suspect]
     Indication: MULTIPLE MYELOMA
     Dates: start: 20031111
  14. CISPLATIN [Suspect]
     Indication: MULTIPLE MYELOMA
     Dates: start: 20031111
  15. NARCOTICS [Suspect]

REACTIONS (14)
  - ABDOMINAL PAIN UPPER [None]
  - BACK PAIN [None]
  - BACTERAEMIA [None]
  - COUGH [None]
  - DYSPNOEA [None]
  - FEBRILE NEUTROPENIA [None]
  - HYPERHIDROSIS [None]
  - NAUSEA [None]
  - PNEUMONIA [None]
  - PULMONARY OEDEMA [None]
  - RESPIRATORY FAILURE [None]
  - SEPTIC SHOCK [None]
  - TACHYCARDIA [None]
  - VOMITING [None]
